FAERS Safety Report 13616121 (Version 1)
Quarter: 2017Q2

REPORT INFORMATION
  Report Type: Spontaneous
  Country: US (occurrence: US)
  Receive Date: 20170605
  Receipt Date: 20170605
  Transmission Date: 20170830
  Serious: Yes (Hospitalization)
  Sender: FDA-Public Use
  Company Number: None

PATIENT
  Age: 66 Year
  Sex: Male
  Weight: 107.5 kg

DRUGS (1)
  1. WARFARIN [Suspect]
     Active Substance: WARFARIN
     Indication: ATRIAL FIBRILLATION
     Dosage: 5 MG OTHER PO
     Route: 048
     Dates: start: 20120120, end: 20120305

REACTIONS (4)
  - Diarrhoea [None]
  - Malaise [None]
  - Hypotension [None]
  - Dehydration [None]

NARRATIVE: CASE EVENT DATE: 20120305
